FAERS Safety Report 16093298 (Version 1)
Quarter: 2019Q1

REPORT INFORMATION
  Report Type: Report from Study
  Country: BR (occurrence: BR)
  Receive Date: 20190320
  Receipt Date: 20190320
  Transmission Date: 20190418
  Serious: Yes (Hospitalization)
  Sender: FDA-Public Use
  Company Number: BR-ROCHE-714314

PATIENT
  Age: 75 Year
  Sex: Female
  Weight: 72.7 kg

DRUGS (5)
  1. TRASTUZUMAB. [Suspect]
     Active Substance: TRASTUZUMAB
     Indication: HER-2 POSITIVE BREAST CANCER
     Dosage: FREQUENCY: 21/21?LAST DOSE PRIOR TO SAE: 06 JUL 2010?TREATMENT MAINTAINED THROUGHOUT DURATION OF SAE
     Route: 042
     Dates: start: 20091006, end: 20101104
  2. PLACEBO [Suspect]
     Active Substance: UNSPECIFIED INGREDIENT
     Indication: HER-2 POSITIVE BREAST CANCER
     Dosage: FREQUENCY: 21/21?LAST DOSE PRIOR TO SAE: 06 JUL 2010?TREATMENT MAINTAINED THROUGHOUT DURATION OF SAE
     Route: 042
     Dates: start: 20091005, end: 20101104
  3. ADALAT [Concomitant]
     Active Substance: NIFEDIPINE
     Route: 065
     Dates: start: 1999, end: 20100713
  4. HYDROCHLOROTHIAZIDE. [Concomitant]
     Active Substance: HYDROCHLOROTHIAZIDE
     Route: 065
     Dates: start: 1999, end: 20100707
  5. DOCETAXEL. [Suspect]
     Active Substance: DOCETAXEL
     Indication: HER-2 POSITIVE BREAST CANCER
     Dosage: FREQUENCY: 21/21?LAST DOSE PRIOR TO SAE: 24 MAY 2010
     Route: 042

REACTIONS (1)
  - Left ventricular dysfunction [Recovered/Resolved]

NARRATIVE: CASE EVENT DATE: 20100707
